FAERS Safety Report 11080430 (Version 2)
Quarter: 2015Q2

REPORT INFORMATION
  Report Type: Report from Study
  Country: CA (occurrence: CA)
  Receive Date: 20150430
  Receipt Date: 20150506
  Transmission Date: 20150821
  Serious: Yes (Other)
  Sender: FDA-Public Use
  Company Number: CA-ABBVIE-15K-028-1382682-00

PATIENT
  Age: 42 Year
  Sex: Female
  Weight: 105.78 kg

DRUGS (3)
  1. HUMIRA [Suspect]
     Active Substance: ADALIMUMAB
     Route: 058
     Dates: start: 2013, end: 20150311
  2. IMURAN [Concomitant]
     Active Substance: AZATHIOPRINE
     Indication: CROHN^S DISEASE
     Route: 048
     Dates: start: 2005
  3. HUMIRA [Suspect]
     Active Substance: ADALIMUMAB
     Indication: CROHN^S DISEASE
     Route: 058
     Dates: start: 20111125, end: 2013

REACTIONS (11)
  - Lupus-like syndrome [Recovered/Resolved]
  - Cryoglobulins present [Recovered/Resolved]
  - Antinuclear antibody positive [Recovered/Resolved]
  - Complex regional pain syndrome [Recovered/Resolved]
  - Double stranded DNA antibody [Recovered/Resolved]
  - Vertigo [Recovered/Resolved]
  - Red blood cell sedimentation rate increased [Recovered/Resolved]
  - Vasculitis [Recovered/Resolved]
  - C-reactive protein increased [Recovered/Resolved]
  - Claudication of jaw muscles [Recovered/Resolved]
  - Headache [Recovered/Resolved]

NARRATIVE: CASE EVENT DATE: 20150218
